FAERS Safety Report 22100139 (Version 11)
Quarter: 2023Q4

REPORT INFORMATION
  Report Type: Spontaneous
  Country: US (occurrence: US)
  Receive Date: 20230315
  Receipt Date: 20231213
  Transmission Date: 20240109
  Serious: Yes (Other)
  Sender: FDA-Public Use
  Company Number: US-PFIZER INC-PV202300046388

PATIENT
  Age: 71 Year
  Sex: Female
  Weight: 77.098 kg

DRUGS (1)
  1. ESTRING [Suspect]
     Active Substance: ESTRADIOL
     Indication: Vaginal disorder
     Dosage: UNK

REACTIONS (10)
  - Dementia [Unknown]
  - Spinal fracture [Unknown]
  - Drug ineffective [Unknown]
  - Intentional product misuse [Unknown]
  - Illness [Not Recovered/Not Resolved]
  - Vulvovaginal pruritus [Not Recovered/Not Resolved]
  - Impaired driving ability [Unknown]
  - Pruritus [Unknown]
  - Body height decreased [Unknown]
  - Treatment delayed [Unknown]

NARRATIVE: CASE EVENT DATE: 20230101
